FAERS Safety Report 21432995 (Version 2)
Quarter: 2022Q4

REPORT INFORMATION
  Report Type: Spontaneous
  Country: JP (occurrence: JP)
  Receive Date: 20221010
  Receipt Date: 20221107
  Transmission Date: 20230112
  Serious: Yes (Other)
  Sender: FDA-Public Use
  Company Number: JP-UCBSA-2022058740

PATIENT
  Age: 33 Year
  Sex: Female

DRUGS (5)
  1. VIMPAT [Suspect]
     Active Substance: LACOSAMIDE
     Indication: Partial seizures
     Dosage: 100 MILLIGRAM/DAY
     Route: 048
  2. VIMPAT [Suspect]
     Active Substance: LACOSAMIDE
     Dosage: 400 MILLIGRAM/DAY
     Route: 048
  3. FOLIC ACID [Concomitant]
     Active Substance: FOLIC ACID
     Indication: Product used for unknown indication
     Dosage: 5 MILLIGRAM/DAY AS OF 4 DAYS
  4. PERAMPANEL [Concomitant]
     Active Substance: PERAMPANEL
     Indication: Partial seizures
     Dosage: 2 MILLIGRAM/DAY
  5. PERAMPANEL [Concomitant]
     Active Substance: PERAMPANEL
     Dosage: 4 MILLIGRAM/DAY

REACTIONS (6)
  - Seizure [Unknown]
  - Loss of consciousness [Recovered/Resolved]
  - Fatigue [Unknown]
  - Caesarean section [Unknown]
  - Maternal exposure during pregnancy [Unknown]
  - Maternal exposure during breast feeding [Unknown]
